FAERS Safety Report 13261158 (Version 2)
Quarter: 2017Q4

REPORT INFORMATION
  Report Type: Report from Study
  Country: BR (occurrence: BR)
  Receive Date: 20170222
  Receipt Date: 20171207
  Transmission Date: 20180320
  Serious: Yes (Other)
  Sender: FDA-Public Use
  Company Number: PHHY2016BR010159

PATIENT
  Sex: Female
  Weight: 58 kg

DRUGS (3)
  1. EXJADE [Suspect]
     Active Substance: DEFERASIROX
     Indication: HAEMOCHROMATOSIS
     Dosage: 1000 MG, (2 TABLETS OF 500 MG)
     Route: 048
     Dates: start: 2012
  2. EXJADE [Suspect]
     Active Substance: DEFERASIROX
     Dosage: UNK
     Route: 065
  3. EXJADE [Suspect]
     Active Substance: DEFERASIROX
     Dosage: 10 MG/KG, QD (750 MG QD)
     Route: 048

REACTIONS (17)
  - Helicobacter gastritis [Unknown]
  - Inflammation [Unknown]
  - Liver iron concentration increased [Not Recovered/Not Resolved]
  - Diarrhoea [Recovering/Resolving]
  - Sluggishness [Unknown]
  - Dizziness postural [Unknown]
  - Malaise [Recovering/Resolving]
  - Peripheral swelling [Unknown]
  - Swelling [Unknown]
  - Joint swelling [Unknown]
  - Cyst [Unknown]
  - Dizziness [Unknown]
  - Nausea [Recovering/Resolving]
  - Blood iron increased [Unknown]
  - Platelet count decreased [Recovering/Resolving]
  - Abdominal pain upper [Unknown]
  - Abdominal discomfort [Unknown]
